FAERS Safety Report 14460591 (Version 1)
Quarter: 2018Q1

REPORT INFORMATION
  Report Type: Spontaneous
  Country: US (occurrence: US)
  Receive Date: 20180130
  Receipt Date: 20180130
  Transmission Date: 20180509
  Serious: No
  Sender: FDA-Public Use
  Company Number: None

PATIENT
  Age: 69 Year
  Sex: Female
  Weight: 60.33 kg

DRUGS (7)
  1. SYNTRHOID [Concomitant]
  2. IBANDRONATE SODIUM 150 MG TABLETS [Suspect]
     Active Substance: IBANDRONATE SODIUM
     Indication: OSTEOPOROSIS
     Dosage: ONLY TOOK ONNE DOSAGE
     Route: 048
     Dates: start: 20170907, end: 20170907
  3. VITAMIN D [Concomitant]
     Active Substance: CHOLECALCIFEROL
  4. CITRACAL [Concomitant]
     Active Substance: CALCIUM CITRATE
  5. ESTRIOL VAGINAL CREME [Concomitant]
  6. COQ10 [Concomitant]
     Active Substance: UBIDECARENONE
  7. CRANBERRY. [Concomitant]
     Active Substance: CRANBERRY

REACTIONS (22)
  - Musculoskeletal disorder [None]
  - Sinus pain [None]
  - Back pain [None]
  - Fatigue [None]
  - Chromaturia [None]
  - Ocular hyperaemia [None]
  - Pain in jaw [None]
  - Spinal pain [None]
  - Eye disorder [None]
  - Pelvic pain [None]
  - Haematemesis [None]
  - Proctalgia [None]
  - Contusion [None]
  - Constipation [None]
  - Productive cough [None]
  - Arthralgia [None]
  - Headache [None]
  - Pain in extremity [None]
  - Gait disturbance [None]
  - Burning sensation [None]
  - Hypoaesthesia [None]
  - Mass [None]

NARRATIVE: CASE EVENT DATE: 20170907
